FAERS Safety Report 9935033 (Version 1)
Quarter: 2014Q1

REPORT INFORMATION
  Report Type: Spontaneous
  Country: CL (occurrence: CL)
  Receive Date: 20140228
  Receipt Date: 20140228
  Transmission Date: 20141002
  Serious: Yes (Hospitalization, Other)
  Sender: FDA-Public Use
  Company Number: CL-PFIZER INC-2014056566

PATIENT
  Age: 82 Year
  Sex: Male

DRUGS (4)
  1. XALATAN [Suspect]
     Indication: GLAUCOMA
     Dosage: UNK
     Route: 047
     Dates: start: 2004
  2. ATORVASTATIN CALCIUM [Concomitant]
  3. ENALAPRIL [Concomitant]
  4. BETOPTIC [Concomitant]

REACTIONS (4)
  - Bacterial infection [Unknown]
  - Prostate cancer [Unknown]
  - Eyelid disorder [Unknown]
  - Eye discharge [Not Recovered/Not Resolved]
